FAERS Safety Report 18484428 (Version 1)
Quarter: 2020Q4

REPORT INFORMATION
  Report Type: Spontaneous
  Country: US (occurrence: US)
  Receive Date: 20201109
  Receipt Date: 20201109
  Transmission Date: 20210114
  Serious: No
  Sender: FDA-Public Use
  Company Number: US-ASTRAZENECA-2020SF42265

PATIENT
  Age: 51 Year
  Sex: Female
  Weight: 78 kg

DRUGS (7)
  1. VITAMIN B COMPLEX [Concomitant]
     Active Substance: CYANOCOBALAMIN\DEXPANTHENOL\NIACINAMIDE\PYRIDOXINE HYDROCHLORIDE\RIBOFLAVIN 5^-PHOSPHATE SODIUM\THIAMINE HYDROCHLORIDE\VITAMIN B COMPLEX
     Dosage: UNKNOWN
     Route: 065
  2. HYDROCHLOROTHIAZIDE. [Concomitant]
     Active Substance: HYDROCHLOROTHIAZIDE
     Indication: HYPERTENSION
     Dosage: UNKNOWN
     Route: 065
  3. XIGDUO XR [Suspect]
     Active Substance: DAPAGLIFLOZIN PROPANEDIOL\METFORMIN HYDROCHLORIDE
     Indication: TYPE 2 DIABETES MELLITUS
     Route: 048
  4. TRESIBA [Concomitant]
     Active Substance: INSULIN DEGLUDEC
     Indication: TYPE 2 DIABETES MELLITUS
     Dosage: UNKNOWN
     Route: 065
  5. FENOFIBRATE. [Concomitant]
     Active Substance: FENOFIBRATE
     Dosage: UNKNOWN
     Route: 065
  6. FISH OIL [Concomitant]
     Active Substance: FISH OIL
     Dosage: UNKNOWN
     Route: 065
  7. IRON [Concomitant]
     Active Substance: IRON
     Dosage: UNKNOWN
     Route: 065

REACTIONS (1)
  - Glycosylated haemoglobin increased [Not Recovered/Not Resolved]
